FAERS Safety Report 7700696-2 (Version None)
Quarter: 2011Q3

REPORT INFORMATION
  Report Type: 
  Country: None (occurrence: None)
  Receive Date: 20110822
  Receipt Date: 20110428
  Transmission Date: 20111222
  Serious: Yes (Other)
  Sender: FDA-Public Use
  Company Number: US-AMGEN-USASP2011021978

PATIENT
  Sex: Female

DRUGS (3)
  1. CORTICOSTEROIDS [Concomitant]
  2. IMMUNGLOBULIN                      /00025201/ [Concomitant]
  3. NPLATE [Suspect]
     Indication: IDIOPATHIC THROMBOCYTOPENIC PURPURA
     Dosage: 1 A?G/KG, UNK
     Dates: start: 20100916, end: 20100916

REACTIONS (2)
  - HEART VALVE OPERATION [None]
  - HAEMOLYTIC ANAEMIA [None]
